FAERS Safety Report 8191919-7 (Version None)
Quarter: 2012Q1

REPORT INFORMATION
  Report Type: 
  Country: None (occurrence: None)
  Receive Date: 20120307
  Receipt Date: 20120302
  Transmission Date: 20120608
  Serious: Yes (Other)
  Sender: FDA-Public Use
  Company Number: DE-AMGEN-DEUSP2012010532

PATIENT
  Age: 79 Year
  Sex: Female

DRUGS (2)
  1. PROLIA [Suspect]
     Indication: OSTEOPOROSIS POSTMENOPAUSAL
     Dosage: 60 MG, Q6MO
     Route: 058
     Dates: start: 20111101
  2. CALCIMAGON                         /00751501/ [Suspect]
     Indication: OSTEOPOROSIS
     Dosage: UNK
     Dates: end: 20120101

REACTIONS (3)
  - BURNING SENSATION [None]
  - LIP SWELLING [None]
  - LARYNGEAL OEDEMA [None]
